FAERS Safety Report 6793079-3 (Version None)
Quarter: 2010Q2

REPORT INFORMATION
  Report Type: 
  Country: None (occurrence: None)
  Receive Date: 20100624
  Receipt Date: 20081119
  Transmission Date: 20101027
  Serious: No
  Sender: FDA-Public Use
  Company Number: US-PFIZER INC-2008098699

PATIENT

DRUGS (1)
  1. DOSTINEX [Suspect]

REACTIONS (1)
  - NAUSEA [None]
